FAERS Safety Report 17275342 (Version 1)
Quarter: 2020Q1

REPORT INFORMATION
  Report Type: Report from Study
  Country: US (occurrence: US)
  Receive Date: 20200116
  Receipt Date: 20200116
  Transmission Date: 20200409
  Serious: Yes (Other)
  Sender: FDA-Public Use
  Company Number: US-AUROBINDO-AUR-APL-2020-002572

PATIENT
  Age: 53 Year
  Sex: Female

DRUGS (1)
  1. SUMATRIPTAN TABLET [Suspect]
     Active Substance: SUMATRIPTAN
     Indication: PRODUCT USED FOR UNKNOWN INDICATION
     Dosage: UNK
     Route: 065

REACTIONS (6)
  - Overdose [Unknown]
  - Toxicity to various agents [Unknown]
  - Hyperhidrosis [Unknown]
  - Tremor [Unknown]
  - Muscle rigidity [Unknown]
  - Somnolence [Unknown]
